FAERS Safety Report 17447264 (Version 1)
Quarter: 2020Q1

REPORT INFORMATION
  Report Type: Spontaneous
  Country: GB (occurrence: GB)
  Receive Date: 20200221
  Receipt Date: 20200221
  Transmission Date: 20200409
  Serious: Yes (Other)
  Sender: FDA-Public Use
  Company Number: GB-TEVA-2020-GB-1189828

PATIENT
  Age: 83 Year

DRUGS (7)
  1. LACTULOSE. [Concomitant]
     Active Substance: LACTULOSE
  2. SLOW SODIUM [Concomitant]
  3. BISACODYL. [Concomitant]
     Active Substance: BISACODYL
  4. SIMVASTATIN. [Concomitant]
     Active Substance: SIMVASTATIN
  5. TEGRETOL [Concomitant]
     Active Substance: CARBAMAZEPINE
  6. LISINOPRIL. [Suspect]
     Active Substance: LISINOPRIL
     Indication: HYPERTENSION
     Dosage: 10 MILLIGRAM DAILY; IN THE MORNING
     Route: 048
     Dates: start: 20190716, end: 20200121
  7. LATANOPROST. [Concomitant]
     Active Substance: LATANOPROST

REACTIONS (1)
  - Dermatitis bullous [Recovering/Resolving]

NARRATIVE: CASE EVENT DATE: 20191125
